FAERS Safety Report 8974652 (Version 1)
Quarter: 2012Q4

REPORT INFORMATION
  Report Type: 
  Country: US (occurrence: US)
  Receive Date: 20121219
  Receipt Date: 20121219
  Transmission Date: 20130627
  Serious: No
  Sender: FDA-Public Use
  Company Number: US-AMGEN-USASP2012056879

PATIENT
  Sex: Female

DRUGS (8)
  1. PROLIA [Suspect]
     Indication: BONE LOSS
     Dosage: UNK
     Dates: start: 20120813
  2. PRAVASTATIN [Concomitant]
     Dosage: UNK
  3. QUINAPRIL [Concomitant]
     Dosage: UNK
  4. TOPROL [Concomitant]
     Dosage: UNK
  5. EFFEXOR [Concomitant]
     Dosage: UNK
  6. SEROQUEL [Concomitant]
     Dosage: UNK
  7. TRAZODONE [Concomitant]
     Dosage: UNK
  8. LETROZOLE [Concomitant]
     Indication: BREAST CANCER

REACTIONS (2)
  - Tooth disorder [Not Recovered/Not Resolved]
  - Constipation [Not Recovered/Not Resolved]
